FAERS Safety Report 4796183-4 (Version None)
Quarter: 2005Q4

REPORT INFORMATION
  Report Type: 
  Country: None (occurrence: None)
  Receive Date: 20051007
  Receipt Date: 20050927
  Transmission Date: 20060501
  Serious: Yes (Hospitalization)
  Sender: FDA-Public Use
  Company Number: 2005BI001512

PATIENT
  Age: 50 Year
  Sex: Female

DRUGS (20)
  1. AVONEX [Suspect]
     Indication: MULTIPLE SCLEROSIS
     Dosage: IM
     Route: 030
     Dates: start: 20040808
  2. LASIX [Concomitant]
  3. LOPRESSOR [Concomitant]
  4. DEPAKOTE [Concomitant]
  5. NEURONTIN [Concomitant]
  6. VICODIN [Concomitant]
  7. DICLOFENAC [Concomitant]
  8. SOMA [Concomitant]
  9. FENTANYL [Concomitant]
  10. CELEBREX [Concomitant]
  11. MIRTAZAPINE [Concomitant]
  12. LIPITOR [Concomitant]
  13. PROMETHAZINE [Concomitant]
  14. PLAVIX [Concomitant]
  15. ALLEGRA [Concomitant]
  16. VALIUM [Concomitant]
  17. TEMAZEPAM [Concomitant]
  18. FENTANYL [Concomitant]
  19. IBUPROFEN [Concomitant]
  20. K-DUR 10 [Concomitant]

REACTIONS (2)
  - CARDIAC VALVE DISEASE [None]
  - VIRAL PERICARDITIS [None]
